FAERS Safety Report 14898136 (Version 2)
Quarter: 2018Q2

REPORT INFORMATION
  Report Type: Spontaneous
  Country: US (occurrence: US)
  Receive Date: 20180515
  Receipt Date: 20180517
  Transmission Date: 20180711
  Serious: No
  Sender: FDA-Public Use
  Company Number: US-SA-2018SA041852

PATIENT

DRUGS (3)
  1. TOUJEO [Suspect]
     Active Substance: INSULIN GLARGINE
     Route: 051
  2. LEVEMIR [Concomitant]
     Active Substance: INSULIN DETEMIR
     Route: 065
  3. SOLOSTAR [Suspect]
     Active Substance: DEVICE

REACTIONS (3)
  - Urticaria [Unknown]
  - Skin irritation [Unknown]
  - Contusion [Unknown]
